FAERS Safety Report 9641843 (Version 1)
Quarter: 2013Q4

REPORT INFORMATION
  Report Type: Spontaneous
  Country: JP (occurrence: None)
  Receive Date: 20131021
  Receipt Date: 20131021
  Transmission Date: 20140711
  Serious: Yes (Life-Threatening)
  Sender: FDA-Public Use
  Company Number: 2013JP00714

PATIENT
  Sex: 0

DRUGS (2)
  1. GEMCITABINE [Suspect]
     Indication: BILE DUCT CANCER
     Dosage: DAY 1 AND 1000 MG/M2, DAY 1 AND DAY 8
  2. FLUROPYRIMIDINE [Suspect]
     Dosage: ON DAYS 1-14 REPEATED EVERY 3 WEEKS

REACTIONS (1)
  - Hyponatraemia [None]
